FAERS Safety Report 8911235 (Version 1)
Quarter: 2012Q4

REPORT INFORMATION
  Report Type: 
  Country: US (occurrence: US)
  Receive Date: 20121116
  Receipt Date: 20121116
  Transmission Date: 20130627
  Serious: Yes (Hospitalization)
  Sender: FDA-Public Use
  Company Number: US-GLAXOSMITHKLINE-A0992819A

PATIENT
  Age: 59 Year
  Sex: Female

DRUGS (6)
  1. VOTRIENT [Suspect]
     Indication: PRODUCT USED FOR UNKNOWN INDICATION
     Dosage: 800MG Per day
     Route: 048
  2. OXYCONTIN CR [Concomitant]
  3. SYNTHROID [Concomitant]
  4. ZETIA [Concomitant]
  5. SERTRALINE [Concomitant]
  6. ATENOLOL [Concomitant]

REACTIONS (1)
  - Nausea [Unknown]
